FAERS Safety Report 7732272-X (Version None)
Quarter: 2011Q3

REPORT INFORMATION
  Report Type: 
  Country: None (occurrence: None)
  Receive Date: 20110906
  Receipt Date: 20110824
  Transmission Date: 20111222
  Serious: No
  Sender: FDA-Public Use
  Company Number: US-AMGEN-USASP2011025539

PATIENT
  Age: 69 Year
  Sex: Female

DRUGS (11)
  1. FISH OIL [Concomitant]
  2. ALPRAZOLAM [Concomitant]
  3. VITAMIN D [Concomitant]
  4. MULTIVITAMIN                       /00097801/ [Concomitant]
  5. PRASTERONE [Concomitant]
  6. PRILOSEC [Concomitant]
  7. CITALOPRAM [Concomitant]
  8. CALCIUM CARBONATE [Concomitant]
  9. VIVELLE [Concomitant]
  10. PROLIA [Suspect]
     Indication: OSTEOPOROSIS POSTMENOPAUSAL
     Dosage: 60 MG, Q6MO
     Dates: start: 20110314
  11. AMITRIPTYLINE HCL [Concomitant]

REACTIONS (7)
  - DYSPEPSIA [None]
  - DIARRHOEA [None]
  - WEIGHT DECREASED [None]
  - ABDOMINAL DISTENSION [None]
  - ABDOMINAL PAIN UPPER [None]
  - FLATULENCE [None]
  - DISCOMFORT [None]
